FAERS Safety Report 6893714-5 (Version None)
Quarter: 2010Q3

REPORT INFORMATION
  Report Type: 
  Country: None (occurrence: None)
  Receive Date: 20100801
  Receipt Date: 20100728
  Transmission Date: 20110219
  Serious: Yes (Other)
  Sender: FDA-Public Use
  Company Number: FR-BRISTOL-MYERS SQUIBB COMPANY-15214208

PATIENT
  Age: 26 Year
  Sex: Female

DRUGS (5)
  1. ELISOR TABS [Suspect]
     Dosage: DF=TABS
  2. PROGRAF [Suspect]
  3. IMUREL [Suspect]
  4. CORTANCYL [Suspect]
  5. FOLIC ACID [Suspect]
     Dates: start: 20100601

REACTIONS (2)
  - ABORTION SPONTANEOUS [None]
  - PREGNANCY [None]
